FAERS Safety Report 7482771-3 (Version None)
Quarter: 2011Q2

REPORT INFORMATION
  Report Type: 
  Country: None (occurrence: None)
  Receive Date: 20110516
  Receipt Date: 20110106
  Transmission Date: 20111010
  Serious: No
  Sender: FDA-Public Use
  Company Number: US-BAYER-2011-029784

PATIENT
  Sex: Female
  Weight: 92.063 kg

DRUGS (8)
  1. LORAZEPAM [Concomitant]
  2. FLEXERIL [Concomitant]
  3. LISINOPRIL [Concomitant]
  4. TEGRETOL [Concomitant]
  5. ALEVE (CAPLET) [Suspect]
     Indication: PAIN IN EXTREMITY
     Dosage: 2 DF, BID, BOTTLE COUNT 200CT
     Route: 048
  6. LIPITOR [Concomitant]
  7. FUROSEMIDE [Concomitant]
  8. AGGRENOX [Concomitant]

REACTIONS (1)
  - NO ADVERSE EVENT [None]
